FAERS Safety Report 8006002-0 (Version None)
Quarter: 2011Q4

REPORT INFORMATION
  Report Type: 
  Country: None (occurrence: None)
  Receive Date: 20111226
  Receipt Date: 20111215
  Transmission Date: 20120403
  Serious: Yes (Hospitalization)
  Sender: FDA-Public Use
  Company Number: DE-AMGEN-DEUCT2011067789

PATIENT
  Age: 68 Year
  Sex: Female

DRUGS (7)
  1. FORMOLICH [Concomitant]
     Dosage: UNK UNK, BID
  2. GLIMEPIRIDE [Concomitant]
     Dosage: 0.5 DF, 1X/DAY
  3. PREDNISOLONE [Concomitant]
     Dosage: 10 MG, 1X/DAY
  4. HYDROCHLOROTHIAZIDE [Concomitant]
     Dosage: UNK UNK, UNK
  5. BUDESONIDE [Concomitant]
     Indication: PRODUCT USED FOR UNKNOWN INDICATION
     Dosage: UNK
  6. METHOTREXATE SODIUM [Concomitant]
     Dosage: 7.5 MG, WEEKLY
     Route: 058
  7. ETANERCEPT [Suspect]
     Indication: PRODUCT USED FOR UNKNOWN INDICATION
     Dosage: UNK
     Dates: start: 20030701, end: 20110501

REACTIONS (1)
  - ASTHMA [None]
